FAERS Safety Report 6166832-7 (Version None)
Quarter: 2009Q2

REPORT INFORMATION
  Report Type: 
  Country: None (occurrence: None)
  Receive Date: 20090423
  Receipt Date: 20090423
  Transmission Date: 20091009
  Serious: No
  Sender: FDA-Public Use
  Company Number: None

PATIENT
  Age: 12 Year
  Sex: Male
  Weight: 49.8957 kg

DRUGS (2)
  1. ASPERCREME HEAT PAIN RELIEVING GEL [Suspect]
     Indication: MYALGIA
  2. ASPERCREME HEAT PAIN RELIEVING GEL [Suspect]
     Indication: PAIN IN EXTREMITY

REACTIONS (6)
  - CRYING [None]
  - GROIN PAIN [None]
  - PAIN [None]
  - SKIN DISORDER [None]
  - THERMAL BURN [None]
  - VULVOVAGINAL PAIN [None]
